FAERS Safety Report 7878662-6 (Version None)
Quarter: 2011Q4

REPORT INFORMATION
  Report Type: 
  Country: None (occurrence: None)
  Receive Date: 20111018
  Receipt Date: 20110801
  Transmission Date: 20120403
  Serious: Yes (Other)
  Sender: FDA-Public Use
  Company Number: 2011P1008070

PATIENT
  Age: 53 Year
  Sex: Female
  Weight: 86.1834 kg

DRUGS (3)
  1. SOMA [Concomitant]
  2. FENTANYL-75 [Suspect]
     Indication: FIBROMYALGIA
     Dosage: 1 PATCH;Q3D;TDER
     Route: 062
  3. CYMBALTA [Concomitant]

REACTIONS (2)
  - APPLICATION SITE BURN [None]
  - ACCIDENTAL EXPOSURE [None]
